FAERS Safety Report 22355353 (Version 1)
Quarter: 2023Q2

REPORT INFORMATION
  Report Type: Spontaneous
  Country: US (occurrence: US)
  Receive Date: 20230523
  Receipt Date: 20230523
  Transmission Date: 20230722
  Serious: Yes (Death, Hospitalization)
  Sender: FDA-Public Use
  Company Number: US-MYLANLABS-2023M1054027

PATIENT
  Sex: Male

DRUGS (1)
  1. NORVASC [Suspect]
     Active Substance: AMLODIPINE BESYLATE
     Indication: Product used for unknown indication
     Dosage: UNK
     Route: 065

REACTIONS (13)
  - Impaired insulin secretion [Fatal]
  - Intentional product misuse [Fatal]
  - Pulmonary oedema [Fatal]
  - Metabolic acidosis [Fatal]
  - Renal failure [Fatal]
  - Anuria [Fatal]
  - Hypoperfusion [Fatal]
  - Respiratory acidosis [Fatal]
  - Ischaemia [Fatal]
  - Ketoacidosis [Fatal]
  - Acute respiratory distress syndrome [Fatal]
  - Hypotension [Fatal]
  - Overdose [Fatal]
